FAERS Safety Report 9682960 (Version 4)
Quarter: 2013Q4

REPORT INFORMATION
  Report Type: Report from Study
  Country: AT (occurrence: AT)
  Receive Date: 20131112
  Receipt Date: 20131209
  Transmission Date: 20140711
  Serious: Yes (Hospitalization)
  Sender: FDA-Public Use
  Company Number: AT-SA-2013SA115478

PATIENT
  Age: 73 Year
  Sex: Male
  Weight: 74 kg

DRUGS (10)
  1. CABAZITAXEL [Suspect]
     Indication: PROSTATE CANCER METASTATIC
     Route: 042
     Dates: start: 20130129, end: 20130129
  2. CABAZITAXEL [Suspect]
     Indication: PROSTATE CANCER METASTATIC
     Route: 042
     Dates: start: 20131016, end: 20131016
  3. PREDNISONE [Suspect]
     Indication: PROSTATE CANCER METASTATIC
     Route: 065
  4. DEXAMETHASONE [Concomitant]
  5. OPIAT [Concomitant]
  6. PANTOPRAZOLE [Concomitant]
  7. GABAPENTIN [Concomitant]
  8. HYDAL [Concomitant]
  9. FERRETAB [Concomitant]
  10. CALCIUM/VITAMIN D [Concomitant]

REACTIONS (1)
  - Cachexia [Recovering/Resolving]
